FAERS Safety Report 5287231-6 (Version None)
Quarter: 2007Q1

REPORT INFORMATION
  Report Type: 
  Country: None (occurrence: None)
  Receive Date: 20070116
  Receipt Date: 20061009
  Transmission Date: 20070707
  Serious: No
  Sender: FDA-Public Use
  Company Number: 2006SP003597

PATIENT
  Age: 65 Year
  Sex: Male
  Weight: 65.7716 kg

DRUGS (3)
  1. LUNESTA [Suspect]
     Indication: SLEEP DISORDER
     Dosage: PRN; ORAL
     Route: 048
     Dates: start: 20060901
  2. LEXAPRO [Concomitant]
  3. INDOMETHACIN [Concomitant]

REACTIONS (6)
  - ASTHENIA [None]
  - CONSTIPATION [None]
  - DIZZINESS [None]
  - FALL [None]
  - INSOMNIA [None]
  - MYALGIA [None]
